FAERS Safety Report 5302428-4 (Version None)
Quarter: 2007Q2

REPORT INFORMATION
  Report Type: 
  Country: None (occurrence: None)
  Receive Date: 20070413
  Receipt Date: 20070328
  Transmission Date: 20071010
  Serious: Yes (Hospitalization)
  Sender: FDA-Public Use
  Company Number: ACO_0331_2007

PATIENT
  Age: 44 Year
  Sex: Male

DRUGS (3)
  1. SIRDALUD [Suspect]
     Indication: INTERVERTEBRAL DISC DISPLACEMENT
     Dosage: 6 MG QDAY
     Dates: start: 20070101, end: 20070120
  2. XEFO [Suspect]
     Indication: INTERVERTEBRAL DISC OPERATION
     Dosage: 24 MG QDAY
     Dates: start: 20070101, end: 20070120
  3. TILUR [Concomitant]

REACTIONS (15)
  - ANOREXIA [None]
  - ASTHENIA [None]
  - BLOOD ALBUMIN DECREASED [None]
  - CELL DEATH [None]
  - CHOLESTASIS [None]
  - CHROMATURIA [None]
  - HEPATIC NECROSIS [None]
  - HEPATIC STEATOSIS [None]
  - HEPATITIS [None]
  - HEPATOCELLULAR DAMAGE [None]
  - JAUNDICE [None]
  - NAUSEA [None]
  - PRURITUS [None]
  - SERUM FERRITIN INCREASED [None]
  - VOMITING [None]
